FAERS Safety Report 7027118-1 (Version None)
Quarter: 2010Q4

REPORT INFORMATION
  Report Type: 
  Country: None (occurrence: None)
  Receive Date: 20101004
  Receipt Date: 20100921
  Transmission Date: 20110411
  Serious: Yes (Other)
  Sender: FDA-Public Use
  Company Number: US-US-EMD SERONO, INC.-7018750

PATIENT
  Sex: Female

DRUGS (5)
  1. REBIF [Suspect]
     Indication: MULTIPLE SCLEROSIS
     Route: 058
     Dates: start: 20090610
  2. GABAPENTIN [Concomitant]
     Indication: MULTIPLE SCLEROSIS
  3. VICOPROFEN [Concomitant]
     Indication: PAIN
  4. VICOPROFEN [Concomitant]
     Indication: LIMB DISCOMFORT
  5. ZOLOFT [Concomitant]
     Indication: DEPRESSION

REACTIONS (8)
  - FEELING ABNORMAL [None]
  - HYPOTHYROIDISM [None]
  - INFLUENZA LIKE ILLNESS [None]
  - INJECTION SITE ERYTHEMA [None]
  - INSOMNIA [None]
  - PARAESTHESIA [None]
  - PSORIASIS [None]
  - VITAMIN D DECREASED [None]
